FAERS Safety Report 6172607-5 (Version None)
Quarter: 2009Q2

REPORT INFORMATION
  Report Type: 
  Country: None (occurrence: None)
  Receive Date: 20090428
  Receipt Date: 20090413
  Transmission Date: 20091009
  Serious: Yes (Other)
  Sender: FDA-Public Use
  Company Number: 2009S1004215

PATIENT
  Age: 88 Year
  Sex: Male
  Weight: 63.5036 kg

DRUGS (18)
  1. IPRATROPIUM BROMIDE [Suspect]
     Indication: ASTHMA
     Dosage: 0.5 MG; 4 TIMES A DAY; INHALATION
     Route: 055
     Dates: start: 20080217, end: 20080323
  2. IPRATROPIUM BROMIDE [Suspect]
     Indication: CHRONIC OBSTRUCTIVE PULMONARY DISEASE
     Dosage: 0.5 MG; 4 TIMES A DAY; INHALATION
     Route: 055
     Dates: start: 20080217, end: 20080323
  3. DUONEB [Suspect]
     Indication: ASTHMA
     Dosage: 0.5 MG; 4 TIMES A DAY; INHALATION, 0.5 MG; 4 TIMES A DAY; INHALATION
     Route: 055
     Dates: end: 20080201
  4. DUONEB [Suspect]
     Indication: CHRONIC OBSTRUCTIVE PULMONARY DISEASE
     Dosage: 0.5 MG; 4 TIMES A DAY; INHALATION, 0.5 MG; 4 TIMES A DAY; INHALATION
     Route: 055
     Dates: end: 20080201
  5. DUONEB [Suspect]
     Indication: ASTHMA
     Dosage: 0.5 MG; 4 TIMES A DAY; INHALATION, 0.5 MG; 4 TIMES A DAY; INHALATION
     Route: 055
     Dates: start: 20080325
  6. DUONEB [Suspect]
     Indication: CHRONIC OBSTRUCTIVE PULMONARY DISEASE
     Dosage: 0.5 MG; 4 TIMES A DAY; INHALATION, 0.5 MG; 4 TIMES A DAY; INHALATION
     Route: 055
     Dates: start: 20080325
  7. ASMANEX TWISTHALER [Concomitant]
  8. NASONEX [Concomitant]
  9. LASIX [Concomitant]
  10. SPIRONOLACTONE [Concomitant]
  11. ASPIRIN [Concomitant]
  12. OMEPRAZOLE [Concomitant]
  13. LOVASTATIN [Concomitant]
  14. IMDUR [Concomitant]
  15. DIGOXIN [Concomitant]
  16. FOSAMAX [Concomitant]
  17. TEGRETOL [Concomitant]
  18. OXYGEN [Concomitant]

REACTIONS (3)
  - DERMATITIS CONTACT [None]
  - NO THERAPEUTIC RESPONSE [None]
  - URTICARIA [None]
